FAERS Safety Report 8511878-4 (Version None)
Quarter: 2012Q3

REPORT INFORMATION
  Report Type: 
  Country: None (occurrence: None)
  Receive Date: 20120716
  Receipt Date: 20120712
  Transmission Date: 20120928
  Serious: Yes (Other)
  Sender: FDA-Public Use
  Company Number: PHHY2012AU044016

PATIENT
  Sex: Male
  Weight: 89.55 kg

DRUGS (17)
  1. VENLAFAXINE [Concomitant]
     Dosage: 75 MG
  2. AMLODIPINE [Concomitant]
     Dosage: 10 MG
  3. ASPIRIN [Concomitant]
  4. METFORMIN HYDROCHLORIDE [Concomitant]
     Dosage: 500 MG
  5. MOMETASONE FUROATE [Concomitant]
  6. FRUSEMIDE [Concomitant]
     Dosage: 40 MG
  7. LANTUS [Concomitant]
  8. FLUTICASONE PROPIONATE/SALMETEROL [Concomitant]
  9. TIOTROPIUM [Concomitant]
     Dosage: 18 UG, UNK
  10. EZETIMIBE/SAMVASTATIN [Concomitant]
  11. BISOPROLOL FUMARATE [Concomitant]
     Dosage: 10 MG
  12. GLUCAGON [Concomitant]
  13. NITROGLYCERIN [Concomitant]
  14. NOVORAPID [Concomitant]
  15. IMATINIB MESYLATE [Suspect]
     Indication: CHRONIC MYELOID LEUKAEMIA
     Dosage: 400 MG, DAILY
     Route: 048
     Dates: start: 20110301, end: 20120517
  16. CLOPIDOGREL [Concomitant]
  17. TEMAZEPAM [Concomitant]
     Dosage: 10 MG

REACTIONS (6)
  - STRESS [None]
  - HYPOPHAGIA [None]
  - PAIN [None]
  - MOUTH ULCERATION [None]
  - LICHEN PLANUS [None]
  - TONGUE ULCERATION [None]
